FAERS Safety Report 7197643-1 (Version None)
Quarter: 2010Q4

REPORT INFORMATION
  Report Type: 
  Country: None (occurrence: None)
  Receive Date: 20101214
  Receipt Date: 20101203
  Transmission Date: 20110411
  Serious: Yes (Other)
  Sender: FDA-Public Use
  Company Number: 023278

PATIENT

DRUGS (1)
  1. ROTIGOTINE(ROTIGOTINE) [Suspect]
     Dosage: TRANSPLACENTAL
     Route: 064

REACTIONS (2)
  - MATERNAL DRUGS AFFECTING FOETUS [None]
  - SMALL FOR DATES BABY [None]
